FAERS Safety Report 4901182-5 (Version None)
Quarter: 2006Q1

REPORT INFORMATION
  Report Type: 
  Country: None (occurrence: None)
  Receive Date: 20060201
  Receipt Date: 20060118
  Transmission Date: 20060701
  Serious: Yes (Hospitalization)
  Sender: FDA-Public Use
  Company Number: DE200601003005

PATIENT
  Age: 51 Year
  Sex: Female

DRUGS (6)
  1. CYMBALTA [Suspect]
     Dosage: 60 MG; 60 MG; 60 MG
     Dates: start: 20050902, end: 20050902
  2. CYMBALTA [Suspect]
     Dosage: 60 MG; 60 MG; 60 MG
     Dates: start: 20050902
  3. CYMBALTA [Suspect]
     Dosage: 60 MG; 60 MG; 60 MG
     Dates: start: 20050902
  4. OXYCODONE HCL [Concomitant]
  5. BERODUAL (FENOTEROL HYDROBROMIDE, IPRATROPIUM BROMIDE) [Concomitant]
  6. LEVOTHYROXINE SODIUM [Concomitant]

REACTIONS (1)
  - HYPERTENSIVE CRISIS [None]
